FAERS Safety Report 7409976-1 (Version None)
Quarter: 2011Q2

REPORT INFORMATION
  Report Type: 
  Country: None (occurrence: None)
  Receive Date: 20110412
  Receipt Date: 20110329
  Transmission Date: 20111010
  Serious: Yes (Hospitalization, Other)
  Sender: FDA-Public Use
  Company Number: US-CELGENEUS-163-21880-11011492

PATIENT
  Sex: Male
  Weight: 84.444 kg

DRUGS (18)
  1. REVLIMID [Suspect]
     Dosage: 25 MILLIGRAM
     Route: 048
     Dates: start: 20101201
  2. SALINE SPRAY [Concomitant]
     Route: 065
  3. DEXAMETHASONE [Concomitant]
     Dosage: 1.5 MILLIGRAM
     Route: 048
  4. ZOMETA [Concomitant]
     Dosage: 4 MILLIGRAM
     Route: 065
  5. REVLIMID [Suspect]
     Indication: MULTIPLE MYELOMA
     Dosage: 25 MILLIGRAM
     Route: 048
     Dates: start: 20100903
  6. SPIRONOLACTONE [Concomitant]
     Dosage: 25 MILLIGRAM
     Route: 065
  7. ASCORBIC ACID [Concomitant]
     Dosage: 4 TABLET
     Route: 048
  8. METHYLPREDNISOLONE ACETATE [Concomitant]
     Indication: ANXIETY
  9. CITALOPRAM [Concomitant]
     Indication: DEPRESSION
     Dosage: 20 MILLIGRAM
     Route: 048
  10. DEXAMETHASONE [Concomitant]
     Indication: MULTIPLE MYELOMA
     Dosage: 20 MILLIGRAM
     Route: 048
  11. TAMSULOSIN [Concomitant]
     Route: 048
  12. ZOMETA [Concomitant]
     Indication: ANXIETY
  13. REVLIMID [Suspect]
     Dosage: 15 MILLIGRAM
     Route: 048
     Dates: start: 20110329
  14. ATENOLOL [Concomitant]
     Indication: BLOOD PRESSURE
     Dosage: 25-50MG
     Route: 065
  15. CITALOPRAM [Concomitant]
     Indication: ANXIETY
  16. PROMETHAZINE [Concomitant]
     Indication: COUGH
     Dosage: 1 TEASPOON
     Route: 065
  17. PATANASE [Concomitant]
     Indication: COUGH
     Dosage: 1
     Route: 065
  18. METHYLPREDNISOLONE ACETATE [Concomitant]
     Dosage: 4 MILLIGRAM
     Route: 065

REACTIONS (6)
  - RASH [None]
  - MUSCLE SPASMS [None]
  - RENAL FAILURE [None]
  - PROSTATOMEGALY [None]
  - BLADDER CANCER [None]
  - BLOOD URINE PRESENT [None]
